FAERS Safety Report 18614100 (Version 3)
Quarter: 2020Q4

REPORT INFORMATION
  Report Type: Spontaneous
  Country: NL (occurrence: NL)
  Receive Date: 20201214
  Receipt Date: 20201228
  Transmission Date: 20210114
  Serious: Yes (Hospitalization, Other)
  Sender: FDA-Public Use
  Company Number: NL-GILEAD-2020-0508810

PATIENT
  Age: 49 Year
  Sex: Female
  Weight: 85.2 kg

DRUGS (41)
  1. COTRIMOXAZOL [Concomitant]
     Active Substance: SULFAMETHOXAZOLE\TRIMETHOPRIM
     Dosage: UNK
     Dates: start: 20201101, end: 20201105
  2. HEPARINE [HEPARIN] [Concomitant]
     Active Substance: HEPARIN SODIUM
  3. SERETIDE [Concomitant]
     Active Substance: FLUTICASONE PROPIONATE\SALMETEROL XINAFOATE
     Dosage: UNK
     Dates: start: 20201130
  4. CLEMASTINE [Concomitant]
     Active Substance: CLEMASTINE
     Dosage: UNK
     Dates: start: 20201130, end: 20201130
  5. POTASSIUM CHLORIDE. [Concomitant]
     Active Substance: POTASSIUM CHLORIDE
  6. MAGNESIUM SULFATE. [Concomitant]
     Active Substance: MAGNESIUM SULFATE
  7. ACICLOVIR [Concomitant]
     Active Substance: ACYCLOVIR
     Dosage: UNK
     Dates: start: 20201031, end: 20201105
  8. METOCLOPRAMIDE. [Concomitant]
     Active Substance: METOCLOPRAMIDE
     Dosage: UNK
     Dates: start: 20201201
  9. MOVICOLON [Concomitant]
     Active Substance: POLYETHYLENE GLYCOL 3350\POTASSIUM CHLORIDE\SODIUM BICARBONATE\SODIUM CHLORIDE
     Dosage: UNK
     Dates: start: 20201204
  10. MIDAZOLAM. [Concomitant]
     Active Substance: MIDAZOLAM
  11. DEPAKINE CHRONO [Concomitant]
     Active Substance: VALPROATE SODIUM
     Dosage: UNK
     Dates: start: 20201207
  12. NADROPARINE [Concomitant]
     Active Substance: NADROPARIN
  13. BISACODYL. [Concomitant]
     Active Substance: BISACODYL
     Dosage: UNK
     Dates: start: 20201027, end: 20201106
  14. SODIUM CHLORIDE. [Concomitant]
     Active Substance: SODIUM CHLORIDE
  15. OXAZEPAM. [Concomitant]
     Active Substance: OXAZEPAM
     Dosage: UNK
     Dates: start: 20201112, end: 20201112
  16. VALACICLOVIR [Concomitant]
     Active Substance: VALACYCLOVIR HYDROCHLORIDE
     Dosage: UNK
     Dates: start: 20201116
  17. TEMAZEPAM. [Concomitant]
     Active Substance: TEMAZEPAM
     Dosage: UNK
     Dates: start: 20201130
  18. XENETIX [Concomitant]
     Active Substance: IOBITRIDOL
     Dosage: UNK
     Dates: start: 20201130, end: 20201130
  19. SCOPOLAMINE BUTYLBROMIDE [Concomitant]
     Active Substance: SCOPOLAMINE
  20. CALCIUM GLUCONATE. [Concomitant]
     Active Substance: CALCIUM GLUCONATE
  21. NATRIUMKALIUMFOSFAAT [Concomitant]
  22. FENTANYL. [Concomitant]
     Active Substance: FENTANYL
     Dosage: UNK
     Dates: start: 20201107, end: 20201107
  23. APIXABAN [Concomitant]
     Active Substance: APIXABAN
     Dosage: UNK
     Dates: start: 20201123
  24. VANCOMYCINE [VANCOMYCIN] [Concomitant]
     Active Substance: VANCOMYCIN
     Dosage: UNK
     Dates: start: 20201127, end: 20201207
  25. NATRIUMBICARBONATE BRAUN [Concomitant]
     Dosage: UNK
     Dates: start: 20201127, end: 20201127
  26. COTRIMOXAZOL [Concomitant]
     Active Substance: SULFAMETHOXAZOLE\TRIMETHOPRIM
     Dosage: UNK
     Dates: start: 20201117
  27. FLUCONAZOL [Concomitant]
     Active Substance: FLUCONAZOLE
     Dosage: UNK
     Dates: start: 20201025, end: 20201031
  28. FLUCONAZOL [Concomitant]
     Active Substance: FLUCONAZOLE
     Dosage: UNK
     Dates: start: 20201031, end: 20201106
  29. DIAZEPAM. [Concomitant]
     Active Substance: DIAZEPAM
     Dosage: UNK
     Dates: start: 20201026, end: 20201027
  30. ESOMEPRAZOL [ESOMEPRAZOLE] [Concomitant]
     Active Substance: ESOMEPRAZOLE
     Dosage: UNK
     Dates: start: 20201031, end: 20201106
  31. FOLIUMZUUR [Concomitant]
     Active Substance: FOLIC ACID
     Dosage: UNK
     Dates: start: 20201125
  32. PARACETAMOL [Concomitant]
     Active Substance: ACETAMINOPHEN
  33. THIAMINE. [Concomitant]
     Active Substance: THIAMINE
  34. NITROFURANTOINE [Concomitant]
     Active Substance: NITROFURANTOIN
  35. MELATONINE [Concomitant]
     Active Substance: MELATONIN
     Dosage: UNK
     Dates: start: 20201107, end: 20201107
  36. FILGRASTIM [Concomitant]
     Active Substance: FILGRASTIM
  37. YESCARTA [Suspect]
     Active Substance: AXICABTAGENE CILOLEUCEL
     Indication: DIFFUSE LARGE B-CELL LYMPHOMA
     Dosage: UNK
     Route: 042
     Dates: start: 20201020, end: 20201020
  38. NATRIUMFOSFATEN KLYSMA [Concomitant]
  39. DOTAREM [Concomitant]
     Active Substance: GADOTERATE MEGLUMINE
     Dosage: UNK
     Dates: start: 20201103, end: 20201103
  40. LIDOCAINE. [Concomitant]
     Active Substance: LIDOCAINE
  41. METAMIZOL [Concomitant]
     Active Substance: METAMIZOLE SODIUM

REACTIONS (4)
  - Cytokine release syndrome [Recovered/Resolved]
  - Human herpesvirus 6 encephalitis [Not Recovered/Not Resolved]
  - Generalised tonic-clonic seizure [Recovered/Resolved]
  - Neurotoxicity [Recovered/Resolved]

NARRATIVE: CASE EVENT DATE: 20201021
